FAERS Safety Report 12393611 (Version 2)
Quarter: 2016Q4

REPORT INFORMATION
  Report Type: Report from Study
  Country: BR (occurrence: BR)
  Receive Date: 20160523
  Receipt Date: 20161006
  Transmission Date: 20170207
  Serious: Yes (Hospitalization, Other)
  Sender: FDA-Public Use
  Company Number: PHHY2016BR070620

PATIENT
  Age: 76 Year
  Sex: Male
  Weight: 50 kg

DRUGS (2)
  1. EXELON PATCH [Suspect]
     Active Substance: RIVASTIGMINE
     Indication: MIXED DEMENTIA
     Dosage: 4.6 MG, QD, PATCH 5 (CM2)
     Route: 062
  2. EXELON PATCH [Suspect]
     Active Substance: RIVASTIGMINE
     Dosage: 9.5 MG, QD, PATCH 10 (CM2)
     Route: 062
     Dates: start: 201510

REACTIONS (13)
  - Application site irritation [Recovering/Resolving]
  - Dry skin [Unknown]
  - Skin atrophy [Unknown]
  - Urinary tract pain [Unknown]
  - Seizure [Unknown]
  - Application site discolouration [Not Recovered/Not Resolved]
  - Product use issue [Unknown]
  - Bladder neoplasm [Recovered/Resolved]
  - Neoplasm prostate [Recovered/Resolved]
  - Application site hypersensitivity [Recovered/Resolved]
  - Skin sensitisation [Unknown]
  - Application site erythema [Not Recovered/Not Resolved]
  - Product adhesion issue [Unknown]

NARRATIVE: CASE EVENT DATE: 201602
